FAERS Safety Report 8833859 (Version 1)
Quarter: 2012Q4

REPORT INFORMATION
  Report Type: Spontaneous
  Country: TR (occurrence: None)
  Receive Date: 20121005
  Receipt Date: 20121005
  Transmission Date: 20130627
  Serious: Yes (Life-Threatening)
  Sender: FDA-Public Use
  Company Number: 1434812

PATIENT
  Age: 57 Year
  Sex: Female

DRUGS (1)
  1. CARBOPLATIN [Suspect]
     Indication: CANCER OF OVARY
     Route: 042
     Dates: start: 20120831, end: 20120831

REACTIONS (5)
  - Hyperhidrosis [None]
  - Tremor [None]
  - Bronchospasm [None]
  - Myalgia [None]
  - Arthralgia [None]
